FAERS Safety Report 6218362-1 (Version None)
Quarter: 2009Q2

REPORT INFORMATION
  Report Type: 
  Country: None (occurrence: None)
  Receive Date: 20090608
  Receipt Date: 20090526
  Transmission Date: 20091009
  Serious: Yes (Hospitalization)
  Sender: FDA-Public Use
  Company Number: A0788866A

PATIENT
  Age: 47 Year
  Sex: Female
  Weight: 82.3 kg

DRUGS (15)
  1. AVANDIA [Suspect]
     Dosage: 8MG PER DAY
     Route: 048
     Dates: start: 20000101, end: 20081101
  2. AVANDAMET [Suspect]
     Route: 048
  3. PREDNISONE [Concomitant]
     Dates: start: 20050301, end: 20061031
  4. LIPITOR [Concomitant]
     Dates: start: 20080111
  5. AZATHIOPRINE [Concomitant]
  6. PLAQUENIL [Concomitant]
  7. ALTACE [Concomitant]
  8. SYNTHROID [Concomitant]
  9. LORTAB [Concomitant]
  10. NEURONTIN [Concomitant]
  11. NEXIUM [Concomitant]
  12. NITROGLYCERIN [Concomitant]
  13. ASPIRIN [Concomitant]
  14. PREMARIN [Concomitant]
  15. SOMA [Concomitant]

REACTIONS (6)
  - CARDIAC DISORDER [None]
  - CEREBROVASCULAR ACCIDENT [None]
  - EYE DISORDER [None]
  - GAIT DISTURBANCE [None]
  - MYOCARDIAL ISCHAEMIA [None]
  - TRANSIENT ISCHAEMIC ATTACK [None]
